FAERS Safety Report 8401584-9 (Version None)
Quarter: 2012Q2

REPORT INFORMATION
  Report Type: 
  Country: None (occurrence: None)
  Receive Date: 20120529
  Receipt Date: 19910711
  Transmission Date: 20120825
  Serious: Yes (Other)
  Sender: FDA-Public Use
  Company Number: 003884

PATIENT
  Age: 71 Year
  Sex: Female

DRUGS (8)
  1. RANITIDINE HYDROCHLORIDE [Concomitant]
  2. ISOSORBIDE DINITRATE (ISOSRBIDE DINITRATE) [Concomitant]
  3. PLETAL [Suspect]
     Dosage: 150;100 MG, DAILY DOSE, ORAL
     Route: 048
     Dates: start: 19910704, end: 19910704
  4. PLETAL [Suspect]
     Dosage: 150;100 MG, DAILY DOSE, ORAL
     Route: 048
     Dates: start: 19910611, end: 19910702
  5. PLETAL [Suspect]
     Dosage: 150;100 MG, DAILY DOSE, ORAL
     Route: 048
     Dates: start: 19910403, end: 19910610
  6. ASPIRIN _DIALUMINATE (ASPIRIN_DILAUMINATEB) [Concomitant]
  7. VERAPAMIL HYDROCHLORIDE [Suspect]
     Dosage: 80 MG, UNKNOWN
     Dates: start: 19910403, end: 19910717
  8. TEPRENONE (TEPRENONE) [Concomitant]

REACTIONS (6)
  - DYSPEPSIA [None]
  - NAUSEA [None]
  - HAEMATEMESIS [None]
  - SHOCK [None]
  - BLOOD GLUCOSE DECREASED [None]
  - GASTRIC MUCOSAL LESION [None]
